FAERS Safety Report 5218244-8 (Version None)
Quarter: 2007Q1

REPORT INFORMATION
  Report Type: 
  Country: None (occurrence: None)
  Receive Date: 20070124
  Receipt Date: 20070112
  Transmission Date: 20070707
  Serious: Yes (Death)
  Sender: FDA-Public Use
  Company Number: IT-PFIZER INC-2005080062

PATIENT
  Sex: Male
  Weight: 65 kg

DRUGS (9)
  1. SU-011,248 [Suspect]
     Indication: RENAL CANCER METASTATIC
     Route: 048
     Dates: start: 20050510, end: 20050521
  2. LANSOX [Concomitant]
     Route: 048
     Dates: start: 20050421, end: 20050522
  3. LASIX [Concomitant]
     Route: 048
     Dates: start: 20020101, end: 20050522
  4. TAREG [Concomitant]
     Route: 048
     Dates: start: 20020101, end: 20050522
  5. MOTILIUM-M [Concomitant]
     Route: 048
     Dates: start: 20050421, end: 20050522
  6. GLUCOPHAGE [Concomitant]
     Route: 048
     Dates: start: 19950101, end: 20050522
  7. CLEXANE [Concomitant]
     Route: 058
     Dates: start: 20050426, end: 20050522
  8. FRAGMIN [Concomitant]
     Route: 058
     Dates: start: 20050401, end: 20050425
  9. VASELINE [Concomitant]
     Route: 048
     Dates: start: 20050421, end: 20050522

REACTIONS (1)
  - SUDDEN DEATH [None]
